FAERS Safety Report 18107117 (Version 1)
Quarter: 2020Q3

REPORT INFORMATION
  Report Type: Spontaneous
  Country: US (occurrence: US)
  Receive Date: 20200803
  Receipt Date: 20200803
  Transmission Date: 20201103
  Serious: Yes (Life-Threatening, Disabling)
  Sender: FDA-Public Use
  Company Number: None

PATIENT
  Age: 58 Year
  Sex: Male
  Weight: 63.9 kg

DRUGS (2)
  1. CIPROFLOXACIN. [Suspect]
     Active Substance: CIPROFLOXACIN
     Indication: PROSTATIC ABSCESS
     Dates: start: 20090809, end: 20090906
  2. JAKAFI [Concomitant]
     Active Substance: RUXOLITINIB

REACTIONS (12)
  - Nervousness [None]
  - Bone marrow disorder [None]
  - Osteosclerosis [None]
  - Flatulence [None]
  - Primary myelofibrosis [None]
  - Agitation [None]
  - Spleen palpable [None]
  - Tremor [None]
  - Pelvic pain [None]
  - Sexual dysfunction [None]
  - Haemoglobin decreased [None]
  - Neoplasm malignant [None]

NARRATIVE: CASE EVENT DATE: 20190802
